FAERS Safety Report 15670697 (Version 2)
Quarter: 2018Q4

REPORT INFORMATION
  Report Type: Spontaneous
  Country: US (occurrence: US)
  Receive Date: 20181129
  Receipt Date: 20181202
  Transmission Date: 20190205
  Serious: Yes (Other)
  Sender: FDA-Public Use
  Company Number: US-JNJFOC-20181112671

PATIENT
  Sex: Female

DRUGS (1)
  1. MODICON [Suspect]
     Active Substance: ETHINYL ESTRADIOL\NORETHINDRONE
     Indication: PRODUCT USED FOR UNKNOWN INDICATION
     Route: 048

REACTIONS (3)
  - Inappropriate schedule of product administration [Unknown]
  - Exposure during pregnancy [Unknown]
  - Pregnancy on oral contraceptive [Unknown]
